FAERS Safety Report 5376610-4 (Version None)
Quarter: 2007Q2

REPORT INFORMATION
  Report Type: 
  Country: None (occurrence: None)
  Receive Date: 20070628
  Receipt Date: 20070619
  Transmission Date: 20071010
  Serious: Yes (Hospitalization)
  Sender: FDA-Public Use
  Company Number: 2007BI007925

PATIENT
  Age: 54 Year
  Sex: Female

DRUGS (4)
  1. AVONEX [Suspect]
     Indication: MULTIPLE SCLEROSIS
     Dosage: 30 UG;QW; IM
     Route: 030
     Dates: start: 19990301, end: 20031001
  2. AVONEX [Suspect]
     Indication: MULTIPLE SCLEROSIS
     Dosage: 30 UG;QW; IM
     Route: 030
     Dates: start: 20031001
  3. MAGNE B6 [Concomitant]
  4. UTEPLEX [Concomitant]

REACTIONS (7)
  - ASTHENIA [None]
  - HYPERTENSION [None]
  - HYPOKALAEMIA [None]
  - RENAL ATROPHY [None]
  - SECONDARY HYPOTHYROIDISM [None]
  - SYNCOPE [None]
  - THYROID NEOPLASM [None]
